FAERS Safety Report 16163390 (Version 1)
Quarter: 2019Q2

REPORT INFORMATION
  Report Type: Report from Study
  Country: CA (occurrence: CA)
  Receive Date: 20190405
  Receipt Date: 20190405
  Transmission Date: 20190711
  Serious: Yes (Other)
  Sender: FDA-Public Use
  Company Number: CA-JNJFOC-20190401602

PATIENT
  Sex: Female

DRUGS (1)
  1. STELARA [Suspect]
     Active Substance: USTEKINUMAB
     Indication: TEMPORAL ARTERITIS
     Dosage: STRENGTH = 90 MG
     Route: 058
     Dates: start: 20180821

REACTIONS (3)
  - Product use in unapproved indication [Unknown]
  - Osteomyelitis [Unknown]
  - Off label use [Unknown]
